FAERS Safety Report 19101275 (Version 1)
Quarter: 2021Q2

REPORT INFORMATION
  Report Type: Spontaneous
  Country: DE (occurrence: DE)
  Receive Date: 20210407
  Receipt Date: 20210407
  Transmission Date: 20210717
  Serious: Yes (Hospitalization)
  Sender: FDA-Public Use
  Company Number: DE-TEVA-2021-DE-1897599

PATIENT
  Age: 76 Year
  Sex: Female

DRUGS (5)
  1. CANDESARTAN. [Concomitant]
     Active Substance: CANDESARTAN
     Dosage: .5 DOSAGE FORMS DAILY; 8 MG, 0.5?0?0?0
  2. ASS 100 [Suspect]
     Active Substance: ASPIRIN
     Dosage: 100 MILLIGRAM DAILY; 1?0?0?0
     Route: 065
  3. MIRTAZAPIN [Concomitant]
     Active Substance: MIRTAZAPINE
     Dosage: .5 DOSAGE FORMS DAILY; 30 MG, 0?0?0?0.5
  4. ATORVASTATIN [Concomitant]
     Active Substance: ATORVASTATIN
     Dosage: 2 DOSAGE FORMS DAILY; 20 MG, 0?0?2?0
  5. DULOXETIN [Suspect]
     Active Substance: DULOXETINE
     Dosage: 30 MILLIGRAM DAILY; 1?0?0?0
     Route: 065

REACTIONS (2)
  - Abdominal pain [Unknown]
  - Haematochezia [Unknown]
